FAERS Safety Report 4964332-0 (Version None)
Quarter: 2006Q1

REPORT INFORMATION
  Report Type: 
  Country: None (occurrence: None)
  Receive Date: 20060331
  Receipt Date: 20060314
  Transmission Date: 20060701
  Serious: Yes (Hospitalization)
  Sender: FDA-Public Use
  Company Number: GBT040601426

PATIENT
  Age: 33 Year
  Sex: Female
  Weight: 109 kg

DRUGS (5)
  1. GEMCITABINE HYDROCHLORIDE (GEMCITABINE HYDROCHLORIDE) VIAL [Suspect]
     Indication: BREAST CANCER
     Dosage: 2750 MG, OTHER,
     Route: 050
     Dates: start: 20060128
  2. PACLITAXEL [Suspect]
     Indication: BREAST CANCER
     Dosage: 385 MG,
     Dates: start: 20040128
  3. EPIRUBICIN [Suspect]
     Indication: BREAST CANCER
     Dosage: 200 MG, OTHER,
     Route: 050
     Dates: start: 20031105, end: 20040107
  4. CYCLOPHOSPHAMIDE [Suspect]
     Indication: BREAST CANCER
     Dosage: 1300 MG, OTHER,
     Route: 050
     Dates: start: 20031105, end: 20040107
  5. DEXAMETHASONE TAB [Concomitant]

REACTIONS (1)
  - CAT SCRATCH DISEASE [None]
